FAERS Safety Report 8137675-X (Version None)
Quarter: 2012Q1

REPORT INFORMATION
  Report Type: 
  Country: None (occurrence: None)
  Receive Date: 20120215
  Receipt Date: 20120209
  Transmission Date: 20120608
  Serious: No
  Sender: FDA-Public Use
  Company Number: US-PFIZER INC-2012036339

PATIENT
  Sex: Male
  Weight: 82.54 kg

DRUGS (1)
  1. VIAGRA [Suspect]
     Indication: ERECTILE DYSFUNCTION
     Dosage: UNK, AS NEEDED
     Route: 048

REACTIONS (1)
  - HEART RATE INCREASED [None]
